FAERS Safety Report 11182782 (Version 2)
Quarter: 2015Q3

REPORT INFORMATION
  Report Type: Spontaneous
  Country: US (occurrence: US)
  Receive Date: 20150611
  Receipt Date: 20150730
  Transmission Date: 20151125
  Serious: Yes (Death, Hospitalization)
  Sender: FDA-Public Use
  Company Number: US-JNJFOC-20150608269

PATIENT
  Age: 78 Year
  Sex: Male

DRUGS (22)
  1. METOPROLOL [Concomitant]
     Active Substance: METOPROLOL
  2. REQUIP [Concomitant]
     Active Substance: ROPINIROLE HYDROCHLORIDE
  3. ACIPHEX [Concomitant]
     Active Substance: RABEPRAZOLE SODIUM
  4. PROZAC [Concomitant]
     Active Substance: FLUOXETINE HYDROCHLORIDE
  5. IMBRUVICA [Suspect]
     Active Substance: IBRUTINIB
     Indication: CHRONIC LYMPHOCYTIC LEUKAEMIA
     Route: 048
     Dates: start: 20150423, end: 20150527
  6. ALLOPURINOL. [Concomitant]
     Active Substance: ALLOPURINOL
     Route: 048
  7. NEURONTIN [Concomitant]
     Active Substance: GABAPENTIN
  8. FLUCONAZOLE. [Concomitant]
     Active Substance: FLUCONAZOLE
  9. MAXIPIME [Concomitant]
     Active Substance: CEFEPIME HYDROCHLORIDE
  10. LIPITOR [Concomitant]
     Active Substance: ATORVASTATIN CALCIUM
  11. CEFDINIR. [Concomitant]
     Active Substance: CEFDINIR
  12. CELEBREX [Suspect]
     Active Substance: CELECOXIB
     Indication: PRODUCT USED FOR UNKNOWN INDICATION
     Dates: start: 20150609, end: 201506
  13. SULFAMETHOXAZOLE [Suspect]
     Active Substance: SULFAMETHOXAZOLE
     Indication: PNEUMONIA
     Dates: start: 20150611, end: 201506
  14. NORVASC [Concomitant]
     Active Substance: AMLODIPINE BESYLATE
  15. ASPIRIN. [Concomitant]
     Active Substance: ASPIRIN
  16. PRILOSEC [Concomitant]
     Active Substance: OMEPRAZOLE MAGNESIUM
  17. DIOVAN [Concomitant]
     Active Substance: VALSARTAN
  18. EXFORGE [Concomitant]
     Active Substance: AMLODIPINE BESYLATE\VALSARTAN
  19. ZOFRAN [Concomitant]
     Active Substance: ONDANSETRON HYDROCHLORIDE
  20. RABEPRAZOLE SODIUM. [Concomitant]
     Active Substance: RABEPRAZOLE SODIUM
  21. XANAX [Concomitant]
     Active Substance: ALPRAZOLAM
  22. ZOCOR [Concomitant]
     Active Substance: SIMVASTATIN

REACTIONS (13)
  - Leukocytosis [Unknown]
  - Productive cough [Unknown]
  - Lethargy [Unknown]
  - Confusional state [Recovered/Resolved]
  - Renal failure [Not Recovered/Not Resolved]
  - Urinary tract infection [Unknown]
  - Hypoxia [Unknown]
  - Stomatitis [Unknown]
  - Asthenia [Recovering/Resolving]
  - Dysuria [Unknown]
  - Pyrexia [Recovered/Resolved]
  - Pneumonia [Fatal]
  - Sinus tachycardia [Unknown]

NARRATIVE: CASE EVENT DATE: 2015
